FAERS Safety Report 16846700 (Version 1)
Quarter: 2019Q3

REPORT INFORMATION
  Report Type: Spontaneous
  Country: GB (occurrence: GB)
  Receive Date: 20190924
  Receipt Date: 20190924
  Transmission Date: 20191005
  Serious: Yes (Death)
  Sender: FDA-Public Use
  Company Number: GB-GUERBET-GB-20190136

PATIENT
  Age: 3 Year
  Sex: Female

DRUGS (2)
  1. LIPIODOL [Suspect]
     Active Substance: ETHIODIZED OIL
     Indication: SCLEROTHERAPY
     Route: 051
     Dates: start: 20190416, end: 20190416
  2. HISTOACRYL [Suspect]
     Active Substance: ENBUCRILATE
     Indication: SCLEROTHERAPY
     Route: 051
     Dates: start: 20190416, end: 20190416

REACTIONS (2)
  - Product use in unapproved indication [Fatal]
  - Death [Fatal]

NARRATIVE: CASE EVENT DATE: 20190416
